FAERS Safety Report 23685935 (Version 13)
Quarter: 2025Q4

REPORT INFORMATION
  Report Type: Report from Study
  Country: CA (occurrence: CA)
  Receive Date: 20240329
  Receipt Date: 20251008
  Transmission Date: 20260117
  Serious: Yes (Hospitalization, Other)
  Sender: GLAXOSMITHKLINE
  Company Number: CA-GLAXOSMITHKLINE-CA2023AMR029090

PATIENT
  Age: 85 Year
  Sex: Female

DRUGS (26)
  1. MEPOLIZUMAB [Suspect]
     Active Substance: MEPOLIZUMAB
     Indication: Asthma
     Dosage: 100 MG, QD
  2. MEPOLIZUMAB [Suspect]
     Active Substance: MEPOLIZUMAB
     Indication: Asthma
     Dosage: 100 MG, Q4W
  3. MEPOLIZUMAB [Suspect]
     Active Substance: MEPOLIZUMAB
     Indication: Asthma
     Dosage: 100 MG, Q4W
  4. MEPOLIZUMAB [Suspect]
     Active Substance: MEPOLIZUMAB
  5. MEPOLIZUMAB [Suspect]
     Active Substance: MEPOLIZUMAB
     Indication: Asthma
     Dosage: 100 MG, Q4W
  6. MEPOLIZUMAB [Suspect]
     Active Substance: MEPOLIZUMAB
  7. MEPOLIZUMAB [Suspect]
     Active Substance: MEPOLIZUMAB
     Indication: Asthma
     Dosage: 100 MG, Q4W
  8. MEPOLIZUMAB [Suspect]
     Active Substance: MEPOLIZUMAB
  9. MEPOLIZUMAB [Suspect]
     Active Substance: MEPOLIZUMAB
     Indication: Asthma
     Dosage: 100 MG, Q4W
  10. MEPOLIZUMAB [Suspect]
     Active Substance: MEPOLIZUMAB
     Indication: Asthma
     Dosage: 100 MG, Q4W
  11. MEPOLIZUMAB [Suspect]
     Active Substance: MEPOLIZUMAB
     Indication: Asthma
     Dosage: 100 MG, Q4W
  12. MEPOLIZUMAB [Suspect]
     Active Substance: MEPOLIZUMAB
     Indication: Asthma
     Dosage: 100 MG, Q4W
  13. COVID-19 VACCINE [Concomitant]
     Indication: Product used for unknown indication
     Dosage: UNK
  14. VENTOLIN [Concomitant]
     Active Substance: ALBUTEROL SULFATE
     Indication: Product used for unknown indication
     Dosage: UNK
  15. ALVESCO [Concomitant]
     Active Substance: CICLESONIDE
     Indication: Product used for unknown indication
     Dosage: UNK
  16. GLYCOPYRRONIUM\INDACATEROL [Concomitant]
     Active Substance: GLYCOPYRRONIUM\INDACATEROL
     Indication: Product used for unknown indication
     Dosage: UNK
  17. ACETYLCYSTEINE [Concomitant]
     Active Substance: ACETYLCYSTEINE
     Indication: Increased viscosity of bronchial secretion
     Dosage: 200 MG/ML, BID
  18. AMLODIPINE [Concomitant]
     Active Substance: AMLODIPINE BESYLATE
     Indication: Hypertension
     Dosage: 1 DF, QD, 2.5MG 1TAB ONCE A DAY TO 5MG 1 1/2 TABS ONCE A DAY
  19. AMLODIPINE [Concomitant]
     Active Substance: AMLODIPINE BESYLATE
     Dosage: 1.5 DF, QD
  20. AMLODIPINE [Concomitant]
     Active Substance: AMLODIPINE BESYLATE
     Dosage: 2.5 MG, QD 1 TABLET TO 5MG 1 1/2 TABS ONCE A DAY
  21. PREDNISONE [Concomitant]
     Active Substance: PREDNISONE
     Indication: Sputum discoloured
     Dosage: UNK, ER PLAN, URGENT ONLY
  22. PREDNISONE [Concomitant]
     Active Substance: PREDNISONE
     Dosage: UNK 2.5MG 1TAB ONCE A DAY TO 5MG 1 1/2 TABS ONCE A DAY
  23. LEVOFLOXACIN [Concomitant]
     Active Substance: LEVOFLOXACIN
     Indication: Product used for unknown indication
     Dosage: 500 MG
  24. IPRATROPIUM [Concomitant]
     Active Substance: IPRATROPIUM
     Indication: Product used for unknown indication
     Dosage: UNK, PRN, BID
  25. ASPIRIN [Concomitant]
     Active Substance: ASPIRIN
     Indication: Product used for unknown indication
     Dosage: 80 MG (PRN)
  26. CLONAZEPAM [Concomitant]
     Active Substance: CLONAZEPAM
     Indication: Product used for unknown indication
     Dosage: 2 MG

REACTIONS (51)
  - Anaemia [Recovering/Resolving]
  - Abdominal distension [Recovering/Resolving]
  - Abdominal pain upper [Unknown]
  - Peripheral swelling [Unknown]
  - Joint swelling [Unknown]
  - Cyst [Recovered/Resolved]
  - Pneumonia [Not Recovered/Not Resolved]
  - Hyperthyroidism [Unknown]
  - Oesophageal stenosis [Not Recovered/Not Resolved]
  - Back pain [Not Recovered/Not Resolved]
  - Pain in extremity [Unknown]
  - Arthralgia [Not Recovered/Not Resolved]
  - Blood pressure abnormal [Unknown]
  - Nasal dryness [Unknown]
  - Blood pressure diastolic increased [Unknown]
  - Blood pressure decreased [Recovered/Resolved]
  - Head discomfort [Unknown]
  - Blood pressure increased [Unknown]
  - Blood pressure systolic increased [Recovering/Resolving]
  - Weight decreased [Unknown]
  - Thyroid disorder [Unknown]
  - Nasopharyngitis [Recovered/Resolved]
  - Sputum discoloured [Recovered/Resolved]
  - Frequent bowel movements [Not Recovered/Not Resolved]
  - Liver disorder [Recovering/Resolving]
  - Lung disorder [Recovering/Resolving]
  - Renal disorder [Recovering/Resolving]
  - Illness [Unknown]
  - Body temperature increased [Unknown]
  - Poor quality sleep [Unknown]
  - Increased viscosity of bronchial secretion [Unknown]
  - Contusion [Not Recovered/Not Resolved]
  - Oesophageal disorder [Unknown]
  - Hypertension [Unknown]
  - Blood magnesium decreased [Unknown]
  - Scratch [Unknown]
  - Cough [Recovering/Resolving]
  - Dyspnoea [Recovered/Resolved]
  - Productive cough [Recovered/Resolved]
  - Purpura [Unknown]
  - Decreased appetite [Not Recovered/Not Resolved]
  - Chills [Recovered/Resolved]
  - Pyrexia [Recovered/Resolved]
  - Weight increased [Unknown]
  - Sputum discoloured [Recovering/Resolving]
  - Rales [Unknown]
  - Dyspnoea exertional [Unknown]
  - Limb injury [Recovering/Resolving]
  - Skin abrasion [Recovering/Resolving]
  - Product storage error [Unknown]
  - Inappropriate schedule of product administration [Unknown]

NARRATIVE: CASE EVENT DATE: 20230723
